FAERS Safety Report 19064237 (Version 1)
Quarter: 2021Q1

REPORT INFORMATION
  Report Type: Spontaneous
  Country: US (occurrence: US)
  Receive Date: 20210326
  Receipt Date: 20210326
  Transmission Date: 20210420
  Serious: Yes (Hospitalization, Other)
  Sender: FDA-Public Use
  Company Number: US-BRISTOL-MYERS SQUIBB COMPANY-BMS-2021-026308

PATIENT

DRUGS (2)
  1. TISSUE PLASMINOGEN ACTIVATOR, RECOMBINATIVE [Concomitant]
     Active Substance: ALTEPLASE
     Indication: ISCHAEMIC STROKE
     Dosage: UNK
     Route: 042
  2. WARFARIN SODIUM. [Suspect]
     Active Substance: WARFARIN SODIUM
     Indication: ISCHAEMIC STROKE
     Dosage: UNK
     Route: 065

REACTIONS (1)
  - Haemorrhage intracranial [Unknown]
